FAERS Safety Report 5125018-5 (Version None)
Quarter: 2006Q4

REPORT INFORMATION
  Report Type: 
  Country: None (occurrence: None)
  Receive Date: 20061006
  Receipt Date: 20060921
  Transmission Date: 20070319
  Serious: Yes (Disabling)
  Sender: FDA-Public Use
  Company Number: 8019134

PATIENT
  Age: 57 Year
  Sex: Male

DRUGS (2)
  1. PREDNISOLONE [Suspect]
     Indication: PROSTATE CANCER
  2. TAXOTERE [Suspect]
     Indication: PROSTATE CANCER
     Dosage: IV
     Route: 042

REACTIONS (1)
  - DEAFNESS BILATERAL [None]
